FAERS Safety Report 23551310 (Version 9)
Quarter: 2024Q3

REPORT INFORMATION
  Report Type: Spontaneous
  Country: US (occurrence: US)
  Receive Date: 20240222
  Receipt Date: 20240806
  Transmission Date: 20241017
  Serious: Yes (Other)
  Sender: BRISTOL MYERS SQUIBB
  Company Number: US-BRISTOL-MYERS SQUIBB COMPANY-2024-027393

PATIENT
  Age: 81 Year
  Sex: Male

DRUGS (3)
  1. LENALIDOMIDE [Suspect]
     Active Substance: LENALIDOMIDE
     Indication: Plasma cell myeloma in remission
     Dosage: TAKE 1 CAPSULE BY MOUTH EVERY DAY FOR 14 DAYS THEN 7 DAYS OFF FOR 21 DAY CYCLE
     Route: 048
     Dates: start: 20180723
  2. LENALIDOMIDE [Suspect]
     Active Substance: LENALIDOMIDE
     Route: 048
  3. LENALIDOMIDE [Suspect]
     Active Substance: LENALIDOMIDE
     Dosage: TAKE 1 CAPSULE BY MOUTH EVERY DAY FOR 14 DAYS THEN 7 DAYS OFF
     Route: 048

REACTIONS (8)
  - Limb injury [Recovering/Resolving]
  - Cataract [Recovering/Resolving]
  - Tooth infection [Recovering/Resolving]
  - Diarrhoea [Not Recovered/Not Resolved]
  - Back pain [Unknown]
  - Localised infection [Unknown]
  - Bronchitis [Unknown]
  - Limb discomfort [Unknown]
